FAERS Safety Report 8445168-5 (Version None)
Quarter: 2012Q2

REPORT INFORMATION
  Report Type: 
  Country: None (occurrence: None)
  Receive Date: 20120618
  Receipt Date: 20120607
  Transmission Date: 20120825
  Serious: Yes (Hospitalization)
  Sender: FDA-Public Use
  Company Number: US-ASTRAZENECA-2012SE38463

PATIENT
  Age: 68 Year
  Sex: Female

DRUGS (2)
  1. SYMBICORT [Suspect]
     Route: 055
  2. OXYGEN [Concomitant]

REACTIONS (3)
  - RENAL DISORDER [None]
  - RECTAL POLYP [None]
  - DYSPNOEA [None]
